FAERS Safety Report 20428839 (Version 2)
Quarter: 2022Q2

REPORT INFORMATION
  Report Type: Spontaneous
  Country: US (occurrence: US)
  Receive Date: 20220204
  Receipt Date: 20220510
  Transmission Date: 20220721
  Serious: No
  Sender: FDA-Public Use
  Company Number: US-ALLERGAN-2203751US

PATIENT
  Age: 55 Year
  Sex: Female
  Weight: 63.492 kg

DRUGS (1)
  1. VUITY [Suspect]
     Active Substance: PILOCARPINE HYDROCHLORIDE
     Indication: Presbyopia
     Dosage: 2 GTT
     Route: 047
     Dates: start: 20220122, end: 20220122

REACTIONS (3)
  - Anxiety [Recovered/Resolved]
  - Eye irritation [Recovered/Resolved]
  - Abnormal sensation in eye [Recovered/Resolved]

NARRATIVE: CASE EVENT DATE: 20220122
